FAERS Safety Report 15702456 (Version 1)
Quarter: 2018Q4

REPORT INFORMATION
  Report Type: Spontaneous
  Country: US (occurrence: US)
  Receive Date: 20181210
  Receipt Date: 20181210
  Transmission Date: 20190205
  Serious: No
  Sender: FDA-Public Use
  Company Number: US-SHIRE-US201847594

PATIENT
  Sex: Female

DRUGS (4)
  1. XIIDRA [Suspect]
     Active Substance: LIFITEGRAST
     Indication: DRY EYE
     Route: 047
  2. EPA [Concomitant]
     Indication: PRODUCT USED FOR UNKNOWN INDICATION
  3. DHA [Concomitant]
     Active Substance: DIETARY SUPPLEMENT
     Indication: PRODUCT USED FOR UNKNOWN INDICATION
  4. FLAXSEED [Concomitant]
     Active Substance: FLAX SEED
     Indication: PRODUCT USED FOR UNKNOWN INDICATION

REACTIONS (8)
  - Instillation site pain [Unknown]
  - Impaired driving ability [Unknown]
  - Glare [Unknown]
  - Diplopia [Unknown]
  - Visual impairment [Unknown]
  - Instillation site reaction [Unknown]
  - Vision blurred [Unknown]
  - Drug ineffective [Unknown]
